FAERS Safety Report 17778473 (Version 1)
Quarter: 2020Q2

REPORT INFORMATION
  Report Type: Spontaneous
  Country: DE (occurrence: DE)
  Receive Date: 20200513
  Receipt Date: 20200513
  Transmission Date: 20200714
  Serious: Yes (Hospitalization)
  Sender: FDA-Public Use
  Company Number: DE-MYLANLABS-2020M1046085

PATIENT
  Age: 80 Year
  Sex: Male

DRUGS (11)
  1. LAMOTRIGIN [Concomitant]
     Active Substance: LAMOTRIGINE
     Dosage: 100 MG, 1-0-1-0, TABLETTEN
  2. NEUROTRAT S [Concomitant]
     Active Substance: PYRIDOXINE\THIAMINE
     Dosage: 100|100 MG, 1-0-0-0, TABLETTEN
  3. ULTIBRO BREEZHALER [Concomitant]
     Active Substance: GLYCOPYRRONIUM\INDACATEROL
     Dosage: 110|50 ?G, 1-0-0-0, DOSIERAEROSOL
  4. VIGANTOL                           /00318501/ [Concomitant]
     Active Substance: CHOLECALCIFEROL
     Dosage: 1000 IE, 1-0-0-0, TABLETTEN
  5. ATORVASTATIN [Concomitant]
     Active Substance: ATORVASTATIN
     Dosage: 40 MG, 0-0-1-0, TABLETTEN
  6. IPRAMOL [Concomitant]
     Active Substance: ALBUTEROL SULFATE\IPRATROPIUM BROMIDE
     Dosage: 0.5|2.5 MG, 1-1-1-1
  7. RISPERIDON [Concomitant]
     Active Substance: RISPERIDONE
     Dosage: 0.5 MG, 0-0-1-0, TABLETTEN
  8. METOPROLOL. [Concomitant]
     Active Substance: METOPROLOL
     Dosage: 47.5 MG, 1-0-1-0, RETARD-TABLETTEN
  9. SPIRONOLACTON [Suspect]
     Active Substance: SPIRONOLACTONE
     Indication: PRODUCT USED FOR UNKNOWN INDICATION
     Dosage: 50 MG/ 2 TAGE, 0.5-0-0-0, TABLETTEN
  10. APIXABAN [Concomitant]
     Active Substance: APIXABAN
     Dosage: 5 MG, 1-0-1-0, TABLETTEN
  11. TORASEMIDE [Suspect]
     Active Substance: TORSEMIDE
     Indication: PRODUCT USED FOR UNKNOWN INDICATION
     Dosage: 10 MG, 1-0-0-0, TABLETTEN
     Route: 065

REACTIONS (3)
  - Dyspnoea [Unknown]
  - Dehydration [Unknown]
  - Fatigue [Unknown]
